FAERS Safety Report 4437905-1 (Version None)
Quarter: 2004Q3

REPORT INFORMATION
  Report Type: 
  Country: None (occurrence: None)
  Receive Date: 20040831
  Receipt Date: 20040826
  Transmission Date: 20050211
  Serious: Yes (Hospitalization)
  Sender: FDA-Public Use
  Company Number: US-MERCK-0408USA02159

PATIENT
  Age: 50 Year
  Sex: Female

DRUGS (7)
  1. LIPITOR [Concomitant]
     Route: 065
  2. INSULIN [Concomitant]
     Route: 065
  3. COZAAR [Suspect]
     Route: 048
  4. REGLAN [Concomitant]
     Route: 065
  5. TOPROL-XL [Concomitant]
     Route: 065
  6. ZOLOFT [Concomitant]
     Route: 065
  7. COUMADIN [Concomitant]
     Route: 065

REACTIONS (1)
  - PANCREATITIS [None]
